FAERS Safety Report 7526694-X (Version None)
Quarter: 2011Q2

REPORT INFORMATION
  Report Type: 
  Country: None (occurrence: None)
  Receive Date: 20110606
  Receipt Date: 20110531
  Transmission Date: 20111010
  Serious: Yes (Disabling, Other)
  Sender: FDA-Public Use
  Company Number: US-ELI_LILLY_AND_COMPANY-US201006003615

PATIENT
  Sex: Female
  Weight: 78.458 kg

DRUGS (4)
  1. LANTUS [Concomitant]
     Indication: DIABETES MELLITUS
     Dosage: UNK
     Dates: start: 20070720
  2. METFORMIN HCL [Concomitant]
     Indication: DIABETES MELLITUS
     Dosage: UNK
     Dates: start: 20070518
  3. ZYRTEC [Concomitant]
     Indication: SEASONAL ALLERGY
     Dosage: UNK
     Dates: start: 20080101
  4. BYETTA [Suspect]
     Dosage: UNK
     Dates: start: 20080617, end: 20080717

REACTIONS (3)
  - RENAL DISORDER [None]
  - PANCREATITIS [None]
  - OFF LABEL USE [None]
